FAERS Safety Report 7544652-6 (Version None)
Quarter: 2011Q2

REPORT INFORMATION
  Report Type: 
  Country: None (occurrence: None)
  Receive Date: 20110614
  Receipt Date: 20110606
  Transmission Date: 20111010
  Serious: No
  Sender: FDA-Public Use
  Company Number: US-BIOGENIDEC-2011BI015889

PATIENT
  Sex: Male

DRUGS (1)
  1. TYSABRI [Suspect]
     Indication: MULTIPLE SCLEROSIS
     Route: 042
     Dates: start: 20091209

REACTIONS (6)
  - CELLULITIS ORBITAL [None]
  - MIGRAINE [None]
  - DECREASED IMMUNE RESPONSIVENESS [None]
  - FEAR [None]
  - MULTIPLE SCLEROSIS RELAPSE [None]
  - FALL [None]
